FAERS Safety Report 5863847-0 (Version None)
Quarter: 2008Q3

REPORT INFORMATION
  Report Type: 
  Country: None (occurrence: None)
  Receive Date: 20080827
  Receipt Date: 20080814
  Transmission Date: 20090109
  Serious: Yes (Other)
  Sender: FDA-Public Use
  Company Number: OPER20080067

PATIENT
  Age: 51 Year
  Sex: Female
  Weight: 87.0906 kg

DRUGS (6)
  1. OPANA ER [Suspect]
     Indication: PAIN
     Dosage: 2 TABS QAM; 1 TAB QPM; 2 TABS QHS, PER ORAL
     Route: 048
     Dates: start: 20080119, end: 20080101
  2. DILAUDID [Concomitant]
  3. AMITRIPTYLINE HCL [Concomitant]
  4. PROVIGIL [Concomitant]
  5. ATENOLOL [Concomitant]
  6. PREVACID [Concomitant]

REACTIONS (2)
  - BRONCHIAL HYPERREACTIVITY [None]
  - DRUG EFFECT DECREASED [None]
